FAERS Safety Report 7176846-6 (Version None)
Quarter: 2010Q4

REPORT INFORMATION
  Report Type: 
  Country: None (occurrence: None)
  Receive Date: 20101220
  Receipt Date: 20101213
  Transmission Date: 20110411
  Serious: Yes (Hospitalization)
  Sender: FDA-Public Use
  Company Number: US-BRISTOL-MYERS SQUIBB COMPANY-15198245

PATIENT
  Age: 53 Year
  Sex: Male

DRUGS (6)
  1. ARIPIPRAZOLE [Suspect]
     Indication: SCHIZOPHRENIA
     Dosage: STOPPED:07JUL10, 8 DAYS; RESTARTED:08JUL10(20MG, REDUCED DOSE).
     Route: 048
     Dates: start: 20100630
  2. ABILIFY [Suspect]
  3. VERAPAMIL [Concomitant]
  4. AMBIEN [Concomitant]
     Dates: start: 20100616
  5. LORTAB [Concomitant]
     Dates: start: 20100705
  6. CLONAZEPAM [Concomitant]
     Dosage: ONGOING
     Dates: start: 20091228

REACTIONS (1)
  - PSYCHOTIC DISORDER [None]
